FAERS Safety Report 15261184 (Version 1)
Quarter: 2018Q3

REPORT INFORMATION
  Report Type: Spontaneous
  Country: US (occurrence: US)
  Receive Date: 20180809
  Receipt Date: 20180809
  Transmission Date: 20181010
  Serious: Yes (Other)
  Sender: FDA-Public Use
  Company Number: US-AVADEL LEGACY PHARMACEUTICALS, LLC-2018AVA00175

PATIENT
  Sex: Female
  Weight: 80.73 kg

DRUGS (4)
  1. VITAMIN D3 [Concomitant]
     Active Substance: CHOLECALCIFEROL
  2. CALCIUM [Concomitant]
     Active Substance: CALCIUM
  3. VITAMIN B12 [Concomitant]
     Active Substance: CYANOCOBALAMIN
  4. NOCTIVA [Suspect]
     Active Substance: DESMOPRESSIN ACETATE
     Indication: BLADDER DISORDER
     Dosage: 0.83 ?G IN ONE NOSTRIL, 1X/DAY ALTERNATING NOSTRILS EACH DAY AT BEDTIME
     Route: 045
     Dates: start: 20180626, end: 2018

REACTIONS (4)
  - Insomnia [Recovered/Resolved]
  - Dyspnoea [Recovered/Resolved]
  - Pollakiuria [Recovered/Resolved]
  - Drug ineffective [Not Recovered/Not Resolved]

NARRATIVE: CASE EVENT DATE: 2018
